FAERS Safety Report 15413063 (Version 1)
Quarter: 2018Q3

REPORT INFORMATION
  Report Type: Spontaneous
  Country: JP (occurrence: JP)
  Receive Date: 20180921
  Receipt Date: 20180921
  Transmission Date: 20181010
  Serious: Yes (Hospitalization)
  Sender: FDA-Public Use
  Company Number: JP-SHIONOGI, INC-2018001191

PATIENT
  Age: 35 Year
  Sex: Male

DRUGS (5)
  1. AUGMENTIN [Concomitant]
     Active Substance: AMOXICILLIN\CLAVULANATE POTASSIUM
     Dosage: UNK UNK, TID
     Route: 065
     Dates: start: 20180604, end: 20180607
  2. CRAVIT [Suspect]
     Active Substance: LEVOFLOXACIN
     Dosage: UNK UNK, QD
     Route: 042
     Dates: start: 20180614
  3. FINIBAX [Suspect]
     Active Substance: DORIPENEM MONOHYDRATE
     Indication: DIVERTICULAR PERFORATION
     Dosage: 0.5 G, TID
     Route: 041
     Dates: start: 20180607, end: 20180614
  4. SAWACILLIN [Concomitant]
     Active Substance: AMOXICILLIN
     Dosage: UNK UNK, TID
     Route: 065
     Dates: start: 20180604, end: 20180607
  5. CEFMETAZOLE NA [Concomitant]
     Active Substance: CEFMETAZOLE
     Indication: DIVERTICULAR PERFORATION
     Dosage: 1 G, BID
     Route: 065
     Dates: start: 20180530, end: 20180604

REACTIONS (1)
  - Liver disorder [Recovered/Resolved]

NARRATIVE: CASE EVENT DATE: 20180614
